FAERS Safety Report 5195594-5 (Version None)
Quarter: 2006Q4

REPORT INFORMATION
  Report Type: 
  Country: None (occurrence: None)
  Receive Date: 20061226
  Receipt Date: 20061226
  Transmission Date: 20070319
  Serious: Yes (Other)
  Sender: FDA-Public Use
  Company Number: None

PATIENT
  Sex: Female
  Weight: 58.9676 kg

DRUGS (4)
  1. CELEBREX [Suspect]
     Indication: INFLAMMATION
     Dosage: 400 MG ONCE PO
     Route: 048
     Dates: start: 20061222, end: 20061222
  2. . [Concomitant]
  3. . [Concomitant]
  4. . [Concomitant]

REACTIONS (3)
  - LACRIMATION INCREASED [None]
  - OEDEMA PERIPHERAL [None]
  - PERIORBITAL OEDEMA [None]
